FAERS Safety Report 4663364-X (Version None)
Quarter: 2005Q2

REPORT INFORMATION
  Report Type: 
  Country: None (occurrence: None)
  Receive Date: 20050513
  Receipt Date: 20050509
  Transmission Date: 20051028
  Serious: Yes (Death)
  Sender: FDA-Public Use
  Company Number: 2005066739

PATIENT
  Sex: Female
  Weight: 100 kg

DRUGS (11)
  1. CELEBREX [Suspect]
     Indication: OSTEOARTHRITIS
     Dosage: 400 MG (200 MG, BID INTERVAL: EVERY DAY), ORAL
     Route: 048
     Dates: start: 20010306, end: 20041117
  2. VIOXX [Suspect]
     Dosage: 50 MG (25 MG, BID INTERVAL: EVERY DAY),ORAL
     Route: 048
     Dates: start: 19991109, end: 20010305
  3. CALCORT (DEFLAZACORT) [Concomitant]
  4. CONDROSULF (CHONDROITIN SULFATE SODIUM) [Concomitant]
  5. BLOPRESS (CANDESARTAN CILEXETIL) [Concomitant]
  6. ACETAMINOPHEN [Concomitant]
  7. LEXOTANIL (BROMAZEPAM) [Concomitant]
  8. TRAMADOLOR [Concomitant]
  9. DUSPATALIN RETARD [Concomitant]
  10. IBUPROFEN [Concomitant]
  11. NEURONTIN [Concomitant]

REACTIONS (6)
  - ASTHENIA [None]
  - CARDIO-RESPIRATORY ARREST [None]
  - ELECTROCARDIOGRAM REPOLARISATION ABNORMALITY [None]
  - ELECTROCARDIOGRAM ST SEGMENT ABNORMAL [None]
  - HEART RATE INCREASED [None]
  - MITRAL VALVE INCOMPETENCE [None]
